FAERS Safety Report 7776903-7 (Version None)
Quarter: 2011Q3

REPORT INFORMATION
  Report Type: 
  Country: None (occurrence: None)
  Receive Date: 20110926
  Receipt Date: 20110912
  Transmission Date: 20111222
  Serious: Yes (Hospitalization)
  Sender: FDA-Public Use
  Company Number: DK-MYLANLABS-2011S1019438

PATIENT
  Sex: Male
  Weight: 93 kg

DRUGS (6)
  1. MIRTAZAPINE [Suspect]
     Indication: OVERDOSE
     Dosage: 230 MG
  2. BACLOFEN [Suspect]
     Indication: SUICIDE ATTEMPT
     Dosage: 1850MG
  3. BACLOFEN [Suspect]
     Dosage: UP TO 2500MG
  4. ESCITALOPRAM [Suspect]
     Indication: OVERDOSE
     Dosage: 160 MG
  5. BACLOFEN [Suspect]
     Dosage: UP TO 2500MG
  6. BACLOFEN [Suspect]
     Indication: OVERDOSE
     Dosage: 1850MG

REACTIONS (6)
  - INTENTIONAL OVERDOSE [None]
  - CONVULSION [None]
  - SINUS BRADYCARDIA [None]
  - SUICIDE ATTEMPT [None]
  - COMA [None]
  - RESPIRATORY RATE DECREASED [None]
